FAERS Safety Report 13815187 (Version 1)
Quarter: 2017Q3

REPORT INFORMATION
  Report Type: Spontaneous
  Country: FR (occurrence: FR)
  Receive Date: 20170731
  Receipt Date: 20170731
  Transmission Date: 20171127
  Serious: Yes (Hospitalization)
  Sender: FDA-Public Use
  Company Number: FR-PFIZER INC-2017323235

PATIENT
  Age: 87 Year
  Sex: Female

DRUGS (13)
  1. OMEPRAZOLE. [Concomitant]
     Active Substance: OMEPRAZOLE
     Dosage: 20 MG, ONCE DAILY
     Route: 048
  2. ATORVASTATIN [Concomitant]
     Active Substance: ATORVASTATIN
     Dosage: 20 MG, ONCE DAILY
     Route: 048
  3. MOVICOL [Concomitant]
     Active Substance: POLYETHYLENE GLYCOL 3350\POTASSIUM CHLORIDE\SODIUM BICARBONATE\SODIUM CHLORIDE
     Dosage: UNK
     Route: 048
  4. MONOTILDIEM [Suspect]
     Active Substance: DILTIAZEM
     Dosage: 300 MG, ONCE DAILY
     Route: 048
     Dates: end: 201706
  5. KARDEGIC [Concomitant]
     Active Substance: ASPIRIN LYSINE
     Dosage: 75 MG, ONCE DAILY
     Route: 048
  6. GANFORT [Concomitant]
     Active Substance: BIMATOPROST\TIMOLOL
     Dosage: 1 DROP, ONCE DAILY
     Route: 047
  7. VOLTARENE [Concomitant]
     Active Substance: DICLOFENAC SODIUM
     Dosage: UNK
     Route: 003
  8. FLUCON [Concomitant]
     Dosage: 1 DROP, ONCE DAILY
     Route: 047
  9. ALDACTONE [Suspect]
     Active Substance: SPIRONOLACTONE
     Dosage: 75 MG, ONCE DAILY
     Route: 048
     Dates: end: 201706
  10. DAFLON [Concomitant]
     Active Substance: DIOSMIN\HESPERIDIN
     Dosage: 500 MG, UNK
     Route: 048
  11. LACTULOSE. [Concomitant]
     Active Substance: LACTULOSE
     Dosage: UNK
     Route: 048
  12. RILMENIDINE [Concomitant]
     Active Substance: RILMENIDINE
     Dosage: 1 MG, TWICE DAILY
     Route: 048
  13. DOLIPRANE [Concomitant]
     Active Substance: ACETAMINOPHEN
     Dosage: UNK
     Route: 048

REACTIONS (6)
  - Malaise [Recovered/Resolved]
  - Bradycardia [Recovered/Resolved]
  - Hyperkalaemia [Recovered/Resolved]
  - Sinoatrial block [Recovered/Resolved]
  - Acute kidney injury [Recovered/Resolved]
  - Hypotension [Recovered/Resolved]

NARRATIVE: CASE EVENT DATE: 20170610
